FAERS Safety Report 7036223-5 (Version None)
Quarter: 2010Q4

REPORT INFORMATION
  Report Type: 
  Country: None (occurrence: None)
  Receive Date: 20101008
  Receipt Date: 20101006
  Transmission Date: 20110411
  Serious: Yes (Hospitalization)
  Sender: FDA-Public Use
  Company Number: US-TYCO HEALTHCARE/MALLINCKRODT-T201002085

PATIENT
  Sex: Female

DRUGS (1)
  1. OXYCODONE [Suspect]
     Dosage: UNK

REACTIONS (5)
  - ABDOMINAL DISTENSION [None]
  - HEADACHE [None]
  - INTESTINAL OBSTRUCTION [None]
  - PRURITUS [None]
  - SLEEP DISORDER [None]
